FAERS Safety Report 17225301 (Version 1)
Quarter: 2019Q4

REPORT INFORMATION
  Report Type: Spontaneous
  Country: US (occurrence: US)
  Receive Date: 20191210
  Receipt Date: 20191210
  Transmission Date: 20200122
  Serious: Yes (Hospitalization)
  Sender: FDA-Public Use
  Company Number: None

PATIENT
  Age: 47 Year
  Sex: Male

DRUGS (7)
  1. AMLODIPINE [Concomitant]
     Active Substance: AMLODIPINE BESYLATE
  2. ZORTRESS [Suspect]
     Active Substance: EVEROLIMUS
     Dosage: .075MG/0.25MG 2 TWICE DAILY BY MOUTH
     Route: 048
     Dates: start: 20191016
  3. TACROLIMUS 0.5MG AND 1MG [Suspect]
     Active Substance: TACROLIMUS
     Dosage: 0.5MG/1MG, 1 2X DAILY, 2 2X DAILY BY MOUTH
     Route: 048
  4. HYDRALAZINE TAB 50 MG [Concomitant]
  5. FEROSUL TAB 325MG [Concomitant]
  6. FLUDROCORT TAB 0.1MG [Concomitant]
  7. ATORVASTATIN TAB 80 MG [Concomitant]

REACTIONS (2)
  - Arthropathy [None]
  - Therapy cessation [None]

NARRATIVE: CASE EVENT DATE: 20191128
